FAERS Safety Report 15151307 (Version 1)
Quarter: 2018Q3

REPORT INFORMATION
  Report Type: Spontaneous
  Country: US (occurrence: US)
  Receive Date: 20180716
  Receipt Date: 20180716
  Transmission Date: 20181010
  Serious: No
  Sender: FDA-Public Use
  Company Number: US-009507513-1611USA013727

PATIENT
  Age: 25 Year
  Sex: Female

DRUGS (4)
  1. ATAZANAVIR. [Suspect]
     Active Substance: ATAZANAVIR SULFATE
     Dosage: DOSE 300, UNIT WAS NOT REPORTED
     Route: 048
  2. EMTRICITABINE (+) RILPIVIRINE HYDROCHLORIDE (+) TENOFOVIR DISOPROXIL F [Suspect]
     Active Substance: EMTRICITABINE\RILPIVIRINE HYDROCHLORIDE\TENOFOVIR DISOPROXIL FUMARATE
     Dosage: DOSE 1DF
     Route: 048
  3. ISENTRESS [Suspect]
     Active Substance: RALTEGRAVIR POTASSIUM
     Dosage: DOSE 800, UNIT WAS NOT REPORTED
     Route: 048
  4. RITONAVIR. [Suspect]
     Active Substance: RITONAVIR
     Dosage: DOSE 100, UNIT WAS NOT REPORTED
     Route: 048

REACTIONS (1)
  - Maternal exposure during pregnancy [Recovered/Resolved]
